FAERS Safety Report 7321399-2 (Version None)
Quarter: 2011Q1

REPORT INFORMATION
  Report Type: 
  Country: None (occurrence: None)
  Receive Date: 20110216
  Receipt Date: 20110202
  Transmission Date: 20110831
  Serious: Yes (Death, Hospitalization)
  Sender: FDA-Public Use
  Company Number: 2011MA001049

PATIENT
  Age: 39 Year

DRUGS (3)
  1. CITALOPRAM HYDROBROMIDE [Suspect]
     Dosage: 0.2 G
  2. DISOPYRAMIDE [Suspect]
     Dosage: 3 G
  3. LITHIUM (LITHIUM) [Suspect]
     Dosage: 7.5 G

REACTIONS (3)
  - OVERDOSE [None]
  - CARDIAC ARREST [None]
  - SHOCK [None]
